FAERS Safety Report 15651363 (Version 2)
Quarter: 2019Q3

REPORT INFORMATION
  Report Type: Spontaneous
  Country: US (occurrence: US)
  Receive Date: 20181123
  Receipt Date: 20190709
  Transmission Date: 20191004
  Serious: Yes (Other)
  Sender: FDA-Public Use
  Company Number: US-SA-2018SA002512

PATIENT
  Age: 58 Year
  Sex: Female
  Weight: 79 kg

DRUGS (6)
  1. TAXOTERE [Suspect]
     Active Substance: DOCETAXEL
     Indication: BREAST CANCER FEMALE
     Dosage: 80 MG, 150 MG; Q3W
     Route: 042
     Dates: start: 20080626, end: 20080626
  2. CYTOXAN [Concomitant]
     Active Substance: CYCLOPHOSPHAMIDE
  3. 5-FLUOROURACIL [FLUOROURACIL SODIUM] [Concomitant]
     Active Substance: FLUOROURACIL SODIUM
  4. TAXOTERE [Suspect]
     Active Substance: DOCETAXEL
     Dosage: 80 MG, 150 MG; Q3W
     Route: 042
     Dates: start: 20080808, end: 20080808
  5. LORAZEPAM. [Concomitant]
     Active Substance: LORAZEPAM
  6. METHOTREXATE. [Concomitant]
     Active Substance: METHOTREXATE

REACTIONS (6)
  - Pain [Unknown]
  - Impaired quality of life [Unknown]
  - Psychological trauma [Unknown]
  - Anxiety [Unknown]
  - Alopecia [Recovering/Resolving]
  - Emotional distress [Unknown]

NARRATIVE: CASE EVENT DATE: 200807
